FAERS Safety Report 5256405-2 (Version None)
Quarter: 2007Q1

REPORT INFORMATION
  Report Type: 
  Country: None (occurrence: None)
  Receive Date: 20061204
  Receipt Date: 20060911
  Transmission Date: 20070707
  Serious: No
  Sender: FDA-Public Use
  Company Number: 2006-BP-10688BP

PATIENT
  Sex: Male

DRUGS (2)
  1. SPIRIVA [Suspect]
     Dosage: NR (18 MCG), IH
     Route: 055
  2. ADVAIR (SERETIDE /01420901) [Concomitant]

REACTIONS (3)
  - CONSTIPATION [None]
  - DEHYDRATION [None]
  - DYSPHAGIA [None]
